FAERS Safety Report 8264338-2 (Version None)
Quarter: 2012Q2

REPORT INFORMATION
  Report Type: 
  Country: None (occurrence: None)
  Receive Date: 20120406
  Receipt Date: 20120402
  Transmission Date: 20120825
  Serious: No
  Sender: FDA-Public Use
  Company Number: US-PFIZER INC-2012064911

PATIENT
  Sex: Male

DRUGS (5)
  1. VANCOMYCIN [Concomitant]
     Dosage: 250 ML, 2X/DAY
  2. SUDAFED 12 HOUR [Suspect]
     Dosage: UNK
  3. METFORMIN [Concomitant]
     Dosage: UNK
  4. ZYVOX [Suspect]
     Indication: INFECTION
     Dosage: 600 MG, 2X/DAY
     Route: 048
     Dates: start: 20120217, end: 20120301
  5. LISINOPRIL [Concomitant]
     Dosage: 40 MG, UNK

REACTIONS (5)
  - NAUSEA [None]
  - DYSGEUSIA [None]
  - DECREASED APPETITE [None]
  - VOMITING [None]
  - LETHARGY [None]
